FAERS Safety Report 24972379 (Version 1)
Quarter: 2025Q1

REPORT INFORMATION
  Report Type: Spontaneous
  Country: GB (occurrence: GB)
  Receive Date: 20250215
  Receipt Date: 20250215
  Transmission Date: 20250409
  Serious: No
  Sender: ALEXION PHARMACEUTICALS
  Company Number: GB-GLAXOSMITHKLINE-GBCH2023007877

PATIENT

DRUGS (1)
  1. NEXIUM [Suspect]
     Active Substance: ESOMEPRAZOLE MAGNESIUM
     Indication: Product used for unknown indication

REACTIONS (4)
  - Anxiety [Unknown]
  - Chest pain [Unknown]
  - Tinnitus [Unknown]
  - Hyperhidrosis [Unknown]
